FAERS Safety Report 9779736 (Version 4)
Quarter: 2014Q1

REPORT INFORMATION
  Report Type: Spontaneous
  Country: US (occurrence: US)
  Receive Date: 20131223
  Receipt Date: 20140324
  Transmission Date: 20141002
  Serious: Yes (Other)
  Sender: FDA-Public Use
  Company Number: US-GLAXOSMITHKLINE-A1054306A

PATIENT
  Sex: Female

DRUGS (8)
  1. ADVAIR HFA [Suspect]
     Indication: CHRONIC OBSTRUCTIVE PULMONARY DISEASE
     Dosage: 1PUFF TWICE PER DAY
     Route: 055
     Dates: end: 201309
  2. ADVAIR HFA [Suspect]
     Indication: CHRONIC OBSTRUCTIVE PULMONARY DISEASE
     Dosage: 1PUFF PER DAY
     Route: 055
     Dates: start: 201309
  3. TRILIPIX [Concomitant]
  4. ESTROGEN PATCH [Concomitant]
  5. LEVOTHYROXINE [Concomitant]
  6. RESTASIS [Concomitant]
  7. ALBUTEROL [Concomitant]
  8. UNKNOWN [Concomitant]

REACTIONS (9)
  - Pseudomonas infection [Unknown]
  - Bronchiectasis [Unknown]
  - Dry mouth [Recovering/Resolving]
  - Dysphonia [Unknown]
  - Nervousness [Not Recovered/Not Resolved]
  - Lung disorder [Unknown]
  - Dry throat [Recovering/Resolving]
  - Dizziness [Unknown]
  - Drug administration error [Unknown]
